FAERS Safety Report 13749656 (Version 1)
Quarter: 2017Q3

REPORT INFORMATION
  Report Type: Spontaneous
  Country: US (occurrence: US)
  Receive Date: 20170713
  Receipt Date: 20170713
  Transmission Date: 20171127
  Serious: No
  Sender: FDA-Public Use
  Company Number: US-SA-2016SA168988

PATIENT
  Sex: Male

DRUGS (3)
  1. VICTOZA [Suspect]
     Active Substance: LIRAGLUTIDE
     Route: 065
  2. METFORMIN [Suspect]
     Active Substance: METFORMIN HYDROCHLORIDE
     Route: 065
  3. AMARYL [Suspect]
     Active Substance: GLIMEPIRIDE
     Route: 065

REACTIONS (2)
  - Diarrhoea [Unknown]
  - Blood glucose fluctuation [Unknown]
